FAERS Safety Report 6579991-9 (Version None)
Quarter: 2010Q1

REPORT INFORMATION
  Report Type: 
  Country: None (occurrence: None)
  Receive Date: 20100212
  Receipt Date: 20100203
  Transmission Date: 20100710
  Serious: Yes (Hospitalization)
  Sender: FDA-Public Use
  Company Number: DK-NOVOPROD-303957

PATIENT
  Age: 75 Year
  Sex: Female

DRUGS (9)
  1. VICTOZA [Suspect]
     Indication: TYPE 2 DIABETES MELLITUS
     Dosage: ADMINISTRATION ONCE DAILY. DOSE UNKNOWN. / SC.
     Route: 058
     Dates: start: 20100115, end: 20100122
  2. AMLODIPINE [Concomitant]
  3. ISOSORBIDE MONONITRATE [Concomitant]
     Dosage: ORAL
     Route: 048
  4. CANDESARTAN [Concomitant]
     Dosage: ORAL
     Route: 048
  5. FUROSEMIDE [Concomitant]
     Dosage: ORAL
     Route: 048
  6. ACETYLSALICYLIC ACID [Concomitant]
     Dosage: ORAL
     Route: 048
  7. METFORMIN [Concomitant]
     Dosage: ORAL
     Route: 048
  8. SIMVASTATIN [Concomitant]
     Dosage: ORAL
     Route: 048
  9. METOPROLOL TARTRATE [Concomitant]
     Dosage: ORAL
     Route: 048

REACTIONS (4)
  - DIARRHOEA [None]
  - NAUSEA [None]
  - RENAL FUNCTION TEST ABNORMAL [None]
  - VOMITING [None]
